FAERS Safety Report 6229342-4 (Version None)
Quarter: 2009Q2

REPORT INFORMATION
  Report Type: 
  Country: None (occurrence: None)
  Receive Date: 20090615
  Receipt Date: 20090605
  Transmission Date: 20091009
  Serious: Yes (Hospitalization)
  Sender: FDA-Public Use
  Company Number: NO-ASTRAZENECA-2009SE01985

PATIENT
  Age: 52 Year
  Sex: Female

DRUGS (7)
  1. ATACAND [Suspect]
     Indication: HYPERTENSION
     Route: 048
  2. LITHIUM CARBONATE [Suspect]
     Indication: BIPOLAR DISORDER
     Dosage: 83 MG, 1 TABLET IN THE MORNING, 1/2 TABLET IN THE EVENING
     Route: 048
     Dates: start: 19950101
  3. LITHIUM CARBONATE [Suspect]
     Dosage: 83 MG, 1 TABLET IN THE MORNING, 1/2 TABLET IN THE EVENING
     Route: 048
  4. TRIATEC [Suspect]
     Indication: HYPERTENSION
     Dates: start: 20060101
  5. ADALAT [Suspect]
     Indication: HYPERTENSION
     Dates: start: 20060101
  6. CENTYL [Suspect]
     Indication: HYPERTENSION
     Dates: start: 20060101
  7. LEVOTHYROXINE SODIUM [Suspect]

REACTIONS (17)
  - BREAST DISCOMFORT [None]
  - DIZZINESS [None]
  - DYSGEUSIA [None]
  - DYSPHAGIA [None]
  - DYSPNOEA [None]
  - FATIGUE [None]
  - HYPERACUSIS [None]
  - HYPOTHYROIDISM [None]
  - INSOMNIA [None]
  - MASTICATION DISORDER [None]
  - MOVEMENT DISORDER [None]
  - PHOTOPHOBIA [None]
  - POLYURIA [None]
  - THERAPEUTIC AGENT TOXICITY [None]
  - TONGUE BITING [None]
  - URINE FLOW DECREASED [None]
  - WEIGHT INCREASED [None]
